FAERS Safety Report 9478082 (Version 2)
Quarter: 2013Q3

REPORT INFORMATION
  Report Type: Spontaneous
  Country: JP (occurrence: JP)
  Receive Date: 20130827
  Receipt Date: 20130906
  Transmission Date: 20140515
  Serious: Yes (Life-Threatening, Other)
  Sender: FDA-Public Use
  Company Number: JP-RANBAXY-2013RR-72374

PATIENT
  Age: 66 Year
  Sex: Male

DRUGS (5)
  1. AMLODIPINE [Suspect]
     Indication: PRINZMETAL ANGINA
     Dosage: 2.5 MG, QD
     Route: 048
  2. NICORANDIL [Suspect]
     Indication: PRINZMETAL ANGINA
     Dosage: 5 MG, TID
     Route: 048
  3. NITROGLYCERIN [Suspect]
     Indication: PRINZMETAL ANGINA
     Dosage: 2 MG, QD
     Route: 062
  4. NICORANDIL [Suspect]
     Indication: PRINZMETAL ANGINA
     Dosage: UNK
     Route: 042
  5. NITROGLYCERIN [Suspect]
     Indication: PRINZMETAL ANGINA
     Dosage: 2.5 MG PATCH, BEFORE SLEEP
     Route: 062

REACTIONS (6)
  - Cardio-respiratory arrest [Recovered/Resolved]
  - Ventricular fibrillation [Recovered/Resolved]
  - Arteriospasm coronary [Recovered/Resolved]
  - Nervous system disorder [Unknown]
  - Withdrawal syndrome [Recovered/Resolved]
  - Drug tolerance [Unknown]
